FAERS Safety Report 25725481 (Version 1)
Quarter: 2025Q3

REPORT INFORMATION
  Report Type: Report from Study
  Country: CA (occurrence: CA)
  Receive Date: 20250826
  Receipt Date: 20250826
  Transmission Date: 20251021
  Serious: Yes (Hospitalization)
  Sender: SAMSUNG BIOEPIS
  Company Number: CA-SAMSUNG BIOEPIS-SB-2025-08217

PATIENT
  Age: 21 Year
  Sex: Female

DRUGS (2)
  1. RENFLEXIS [Suspect]
     Active Substance: INFLIXIMAB-ABDA
     Indication: Crohn^s disease
     Route: 042
     Dates: start: 20190603
  2. RENFLEXIS [Suspect]
     Active Substance: INFLIXIMAB-ABDA
     Dosage: RESTARTED;
     Route: 042
     Dates: start: 20190603

REACTIONS (5)
  - Escherichia infection [Unknown]
  - Pyrexia [Unknown]
  - Dysarthria [Unknown]
  - Immunosuppression [Unknown]
  - Vitamin D decreased [Unknown]
